FAERS Safety Report 7215954-8 (Version None)
Quarter: 2011Q1

REPORT INFORMATION
  Report Type: 
  Country: None (occurrence: None)
  Receive Date: 20110107
  Receipt Date: 20110104
  Transmission Date: 20110831
  Serious: Yes (Hospitalization, Disabling)
  Sender: FDA-Public Use
  Company Number: US-MERCK-1004USA02501

PATIENT
  Age: 50 Year
  Sex: Female

DRUGS (6)
  1. FOSAMAX [Suspect]
     Route: 048
     Dates: start: 20060508, end: 20061116
  2. BONIVA [Suspect]
     Indication: OSTEOPENIA
     Route: 048
     Dates: start: 20061201, end: 20080330
  3. FOSAMAX [Suspect]
     Indication: OSTEOPOROSIS
     Route: 048
     Dates: start: 20000101, end: 20090101
  4. FOSAMAX [Suspect]
     Route: 048
     Dates: start: 20060508, end: 20061116
  5. BONIVA [Suspect]
     Indication: OSTEOPOROSIS
     Route: 048
     Dates: start: 20061201, end: 20080330
  6. FOSAMAX [Suspect]
     Indication: OSTEOPENIA
     Route: 048
     Dates: start: 20000101, end: 20090101

REACTIONS (9)
  - FEMUR FRACTURE [None]
  - STRESS FRACTURE [None]
  - GINGIVAL DISORDER [None]
  - HYPERTENSION [None]
  - OSTEOPOROSIS [None]
  - LOW TURNOVER OSTEOPATHY [None]
  - ANXIETY [None]
  - DEPRESSION [None]
  - BLOOD CHOLESTEROL INCREASED [None]
